FAERS Safety Report 19269359 (Version 1)
Quarter: 2021Q2

REPORT INFORMATION
  Report Type: Spontaneous
  Country: US (occurrence: US)
  Receive Date: 20210517
  Receipt Date: 20210517
  Transmission Date: 20210717
  Serious: No
  Sender: FDA-Public Use
  Company Number: US-SA-2021SA159848

PATIENT
  Age: 68 Year
  Sex: Female

DRUGS (1)
  1. DUPIXENT [Suspect]
     Active Substance: DUPILUMAB
     Indication: NASAL POLYPS
     Dosage: 300 MG, QOW
     Route: 058
     Dates: start: 202012

REACTIONS (9)
  - Dysphonia [Unknown]
  - Condition aggravated [Unknown]
  - Throat irritation [Not Recovered/Not Resolved]
  - Gastrooesophageal reflux disease [Unknown]
  - Oesophageal pain [Unknown]
  - Psoriasis [Unknown]
  - Chest discomfort [Recovering/Resolving]
  - Skin exfoliation [Unknown]
  - Middle insomnia [Unknown]

NARRATIVE: CASE EVENT DATE: 202104
